FAERS Safety Report 7859965-8 (Version None)
Quarter: 2011Q4

REPORT INFORMATION
  Report Type: 
  Country: None (occurrence: None)
  Receive Date: 20111026
  Receipt Date: 20111026
  Transmission Date: 20120403
  Serious: No
  Sender: FDA-Public Use
  Company Number: None

PATIENT
  Age: 59 Year
  Sex: Female

DRUGS (5)
  1. LISINOPRIL [Concomitant]
  2. CALCIUM + VITAMIN D [Concomitant]
  3. ACYCLOVIR [Concomitant]
  4. REVLIMID [Suspect]
     Indication: MULTIPLE MYELOMA
     Dosage: REVLIMID 15MG DAILY ORAL
     Route: 048
     Dates: start: 20101215, end: 20110401
  5. REVLIMID [Suspect]
     Indication: MULTIPLE MYELOMA
     Dosage: REVLIMID 15MG DAILY ORAL
     Route: 048
     Dates: start: 20110802

REACTIONS (2)
  - NEUROPATHY PERIPHERAL [None]
  - CONDITION AGGRAVATED [None]
